FAERS Safety Report 24372137 (Version 1)
Quarter: 2024Q3

REPORT INFORMATION
  Report Type: Spontaneous
  Country: ES (occurrence: ES)
  Receive Date: 20240927
  Receipt Date: 20240927
  Transmission Date: 20241016
  Serious: Yes (Death)
  Sender: CHEPLAPHARM
  Company Number: None

PATIENT
  Age: 71 Year
  Sex: Male

DRUGS (1)
  1. CAPECITABINE [Suspect]
     Active Substance: CAPECITABINE
     Indication: Adenocarcinoma of colon
     Route: 048
     Dates: start: 20220520, end: 20220603

REACTIONS (9)
  - Pancytopenia [Fatal]
  - Mucosal inflammation [Fatal]
  - Diarrhoea [Fatal]
  - Cytomegalovirus infection reactivation [Fatal]
  - Dermatitis [Fatal]
  - Pyrexia [Fatal]
  - Respiratory disorder [Fatal]
  - Condition aggravated [Fatal]
  - Cardio-respiratory arrest [Fatal]

NARRATIVE: CASE EVENT DATE: 20220602
